FAERS Safety Report 4716334-7 (Version None)
Quarter: 2005Q3

REPORT INFORMATION
  Report Type: 
  Country: None (occurrence: None)
  Receive Date: 20050711
  Receipt Date: 20050518
  Transmission Date: 20060218
  Serious: Yes (Hospitalization)
  Sender: FDA-Public Use
  Company Number: 004846

PATIENT
  Age: 32 Year
  Sex: Female

DRUGS (2)
  1. SEASONALE [Suspect]
     Indication: DYSMENORRHOEA
     Dosage: 1.00 TABLET, QD ORAL
     Route: 048
     Dates: start: 20050209, end: 20050301
  2. SEASONALE [Suspect]
     Indication: ORAL CONTRACEPTION
     Dosage: 1.00 TABLET, QD ORAL
     Route: 048
     Dates: start: 20050209, end: 20050301

REACTIONS (1)
  - DEEP VEIN THROMBOSIS [None]
